FAERS Safety Report 12486947 (Version 1)
Quarter: 2016Q2

REPORT INFORMATION
  Report Type: Spontaneous
  Country: US (occurrence: None)
  Receive Date: 20160621
  Receipt Date: 20160621
  Transmission Date: 20160815
  Serious: Yes (Disabling)
  Sender: FDA-Public Use
  Company Number: None

PATIENT
  Age: 64 Year
  Sex: Male
  Weight: 81.65 kg

DRUGS (1)
  1. GAMUNEX-C [Suspect]
     Active Substance: HUMAN IMMUNOGLOBULIN G
     Indication: DEMYELINATING POLYNEUROPATHY
     Dates: start: 20160404, end: 20160408

REACTIONS (10)
  - Body temperature fluctuation [None]
  - Weight increased [None]
  - Alopecia [None]
  - Chills [None]
  - Dehydration [None]
  - Skin lesion [None]
  - Skin exfoliation [None]
  - Hypersensitivity [None]
  - Tremor [None]
  - Blood glucose increased [None]

NARRATIVE: CASE EVENT DATE: 20160409
